FAERS Safety Report 6310039-7 (Version None)
Quarter: 2009Q3

REPORT INFORMATION
  Report Type: 
  Country: None (occurrence: None)
  Receive Date: 20090814
  Receipt Date: 20090807
  Transmission Date: 20100115
  Serious: Yes (Hospitalization)
  Sender: FDA-Public Use
  Company Number: BR-AVENTIS-200918416GDDC

PATIENT
  Sex: Male

DRUGS (4)
  1. LANTUS [Suspect]
     Route: 058
  2. LANTUS [Suspect]
     Route: 058
     Dates: end: 20090701
  3. LANTUS [Suspect]
     Route: 058
     Dates: start: 20090701
  4. HUMALOG [Concomitant]

REACTIONS (5)
  - DIABETES MELLITUS INADEQUATE CONTROL [None]
  - DRUG INEFFECTIVE [None]
  - GASTROENTERITIS [None]
  - HYPERGLYCAEMIA [None]
  - HYPOGLYCAEMIA [None]
